FAERS Safety Report 16772092 (Version 5)
Quarter: 2020Q1

REPORT INFORMATION
  Report Type: Spontaneous
  Country: US (occurrence: US)
  Receive Date: 20190904
  Receipt Date: 20200131
  Transmission Date: 20200409
  Serious: Yes (Hospitalization, Other)
  Sender: FDA-Public Use
  Company Number: US-PFIZER INC-2009237322

PATIENT
  Age: 60 Year
  Sex: Male
  Weight: 88.44 kg

DRUGS (17)
  1. VIAGRA [Suspect]
     Active Substance: SILDENAFIL CITRATE
     Indication: INSOMNIA
  2. VICODIN [Concomitant]
     Active Substance: ACETAMINOPHEN\HYDROCODONE BITARTRATE
     Indication: PAIN IN EXTREMITY
  3. MICARDIS [Concomitant]
     Active Substance: TELMISARTAN
     Indication: HYPERTENSION
     Dosage: 40 MG, 1X/DAY
     Route: 048
  4. MICROCID [HYDROGEN PEROXIDE] [Concomitant]
     Dosage: UNK
  5. AVODART [Concomitant]
     Active Substance: DUTASTERIDE
     Dosage: UNK
  6. VIAGRA [Suspect]
     Active Substance: SILDENAFIL CITRATE
     Indication: ORGANIC ERECTILE DYSFUNCTION
  7. VICODIN [Concomitant]
     Active Substance: ACETAMINOPHEN\HYDROCODONE BITARTRATE
     Indication: BACK PAIN
     Dosage: 750 MG, AS NEEDED (ONE OR TWO TIMES A DAY)
     Route: 048
  8. PRAVASTINE [Concomitant]
     Active Substance: PRAVASTATIN SODIUM
     Dosage: UNK
  9. VIAGRA [Suspect]
     Active Substance: SILDENAFIL CITRATE
     Indication: SLEEP DISORDER
     Dosage: 50 MG, DAILY (ONE HALF 100MG TABLET)
     Route: 048
  10. VIAGRA [Suspect]
     Active Substance: SILDENAFIL CITRATE
     Indication: ERECTILE DYSFUNCTION
  11. VIAGRA [Suspect]
     Active Substance: SILDENAFIL CITRATE
     Indication: PROSTATIC DISORDER
     Dosage: 50 MG, 1X/DAY
     Route: 048
     Dates: start: 2005, end: 20090720
  12. VIAGRA [Suspect]
     Active Substance: SILDENAFIL CITRATE
     Indication: URINARY TRACT OBSTRUCTION
  13. FLOMAX [Concomitant]
     Active Substance: TAMSULOSIN HYDROCHLORIDE
     Indication: PROSTATOMEGALY
     Dosage: 0.4 MG, 1X/DAY
     Route: 048
     Dates: start: 2005
  14. FLOMAX [Concomitant]
     Active Substance: TAMSULOSIN HYDROCHLORIDE
     Indication: INSOMNIA
     Dosage: 0.8 MG, DAILY (0.4MG CAPSULES BY MOUTH TWO DAILY)
     Dates: start: 2009
  15. DIOVAN [Concomitant]
     Active Substance: VALSARTAN
     Dosage: UNK
  16. VIAGRA [Suspect]
     Active Substance: SILDENAFIL CITRATE
     Indication: NOCTURIA
     Dosage: 100 MG (1 TABLET ONCE A DAY, AS NEEDED)
  17. VIAGRA [Suspect]
     Active Substance: SILDENAFIL CITRATE
     Indication: PROSTATOMEGALY
     Dosage: 50 MG, 1X/DAY
     Dates: start: 2008

REACTIONS (5)
  - Bladder cancer [Recovered/Resolved]
  - Product use in unapproved indication [Unknown]
  - Drug ineffective [Unknown]
  - Off label use [Unknown]
  - Drug effective for unapproved indication [Recovered/Resolved]

NARRATIVE: CASE EVENT DATE: 2008
